FAERS Safety Report 21669942 (Version 1)
Quarter: 2022Q4

REPORT INFORMATION
  Report Type: Spontaneous
  Country: None (occurrence: US)
  Receive Date: 20221201
  Receipt Date: 20221201
  Transmission Date: 20230113
  Serious: Yes (Hospitalization, Other)
  Sender: FDA-Public Use
  Company Number: US-Breckenridge Pharmaceutical, Inc.-2135445

PATIENT
  Age: 75 Year
  Sex: Female
  Weight: 81.818 kg

DRUGS (1)
  1. ALPRAZOLAM [Suspect]
     Active Substance: ALPRAZOLAM
     Indication: Anxiety
     Route: 048

REACTIONS (6)
  - Intentional overdose [Unknown]
  - Amnesia [Unknown]
  - Dyskinesia [Unknown]
  - Loss of consciousness [Unknown]
  - Hallucination [Unknown]
  - Tremor [Unknown]
